FAERS Safety Report 23953705 (Version 1)
Quarter: 2024Q2

REPORT INFORMATION
  Report Type: Spontaneous
  Country: US (occurrence: US)
  Receive Date: 20240608
  Receipt Date: 20240608
  Transmission Date: 20240716
  Serious: No
  Sender: FDA-Public Use
  Company Number: US-STI Pharma LLC-2157897

PATIENT
  Age: 28 Year
  Sex: Male

DRUGS (3)
  1. ETHAMBUTOL HYDROCHLORIDE [Suspect]
     Active Substance: ETHAMBUTOL HYDROCHLORIDE
     Dates: start: 202302
  2. AZITHROMYCIN [Concomitant]
     Active Substance: AZITHROMYCIN
     Dates: start: 202302
  3. RIFAMPIN [Concomitant]
     Active Substance: RIFAMPIN
     Dates: start: 202302

REACTIONS (2)
  - Pulmonary cavitation [Unknown]
  - Atypical mycobacterium test positive [Unknown]
